FAERS Safety Report 22371141 (Version 2)
Quarter: 2023Q2

REPORT INFORMATION
  Report Type: Report from Study
  Country: GB (occurrence: GB)
  Receive Date: 20230526
  Receipt Date: 20230607
  Transmission Date: 20230721
  Serious: Yes (Other)
  Sender: FDA-Public Use
  Company Number: GB-BoehringerIngelheim-2023-BI-239172

PATIENT
  Age: 50 Year
  Sex: Male

DRUGS (1)
  1. TENECTEPLASE [Suspect]
     Active Substance: TENECTEPLASE
     Indication: Ischaemic stroke
     Route: 042
     Dates: start: 20230512

REACTIONS (3)
  - Neurological decompensation [Unknown]
  - Decompressive craniectomy [Unknown]
  - Malignant middle cerebral artery syndrome [Unknown]

NARRATIVE: CASE EVENT DATE: 20230513
